FAERS Safety Report 8513936-7 (Version None)
Quarter: 2012Q3

REPORT INFORMATION
  Report Type: 
  Country: None (occurrence: None)
  Receive Date: 20120717
  Receipt Date: 20120627
  Transmission Date: 20120928
  Serious: No
  Sender: FDA-Public Use
  Company Number: US-009507513-2012SP027213

PATIENT

DRUGS (4)
  1. ATENOLOL [Concomitant]
  2. NITRO-DUR [Suspect]
     Indication: ANGINA PECTORIS
     Dosage: 0.8 MG, Q12H
     Route: 062
     Dates: start: 20020101
  3. ZOCOR [Concomitant]
  4. DICLOFENAC [Concomitant]

REACTIONS (1)
  - THERAPEUTIC PRODUCT INEFFECTIVE [None]
